FAERS Safety Report 22378117 (Version 3)
Quarter: 2023Q2

REPORT INFORMATION
  Report Type: Report from Study
  Country: US (occurrence: US)
  Receive Date: 20230529
  Receipt Date: 20230605
  Transmission Date: 20230721
  Serious: No
  Sender: FDA-Public Use
  Company Number: US-002147023-NVSC2023US117897

PATIENT
  Sex: Female

DRUGS (1)
  1. KESIMPTA [Suspect]
     Active Substance: OFATUMUMAB
     Indication: Product used for unknown indication
     Dosage: UNK
     Route: 065
     Dates: start: 20230518

REACTIONS (5)
  - Bronchitis [Not Recovered/Not Resolved]
  - Fatigue [Unknown]
  - Cough [Unknown]
  - Pyrexia [Unknown]
  - Accidental exposure to product [Unknown]
